FAERS Safety Report 9303642 (Version 1)
Quarter: 2013Q2

REPORT INFORMATION
  Report Type: Spontaneous
  Country: US (occurrence: US)
  Receive Date: 20130522
  Receipt Date: 20130522
  Transmission Date: 20140414
  Serious: Yes (Hospitalization)
  Sender: FDA-Public Use
  Company Number: US-BAYER-2013-062108

PATIENT
  Age: 26 Year
  Sex: Female

DRUGS (3)
  1. YAZ [Suspect]
  2. GIANVI [Suspect]
  3. IMITREX [Concomitant]
     Indication: MIGRAINE

REACTIONS (3)
  - Paradoxical embolism [None]
  - Cerebral ischaemia [None]
  - Cerebrovascular accident [None]
